FAERS Safety Report 11339141 (Version 1)
Quarter: 2015Q3

REPORT INFORMATION
  Report Type: Spontaneous
  Country: US (occurrence: US)
  Receive Date: 20150803
  Receipt Date: 20150803
  Transmission Date: 20151125
  Serious: Yes (Other)
  Sender: FDA-Public Use
  Company Number: US-ELI_LILLY_AND_COMPANY-US200905004709

PATIENT
  Age: 18 Year
  Sex: Male

DRUGS (2)
  1. STRATTERA [Suspect]
     Active Substance: ATOMOXETINE HYDROCHLORIDE
     Indication: ATTENTION DEFICIT/HYPERACTIVITY DISORDER
     Dosage: 90 MG, DAILY (1/D)
     Route: 065
     Dates: start: 2003, end: 20090430
  2. ANTIBIOTICS [Concomitant]
     Active Substance: UNSPECIFIED INGREDIENT
     Indication: ACNE
     Dosage: UNK, UNKNOWN
     Route: 065

REACTIONS (5)
  - Tonic clonic movements [Recovered/Resolved]
  - Salivary hypersecretion [Recovered/Resolved]
  - Muscle rigidity [Recovered/Resolved]
  - Seizure [Recovered/Resolved]
  - Seizure [Recovered/Resolved]

NARRATIVE: CASE EVENT DATE: 20090430
